FAERS Safety Report 18211736 (Version 1)
Quarter: 2020Q3

REPORT INFORMATION
  Report Type: Spontaneous
  Country: CL (occurrence: CL)
  Receive Date: 20200831
  Receipt Date: 20200831
  Transmission Date: 20201103
  Serious: Yes (Hospitalization, Other)
  Sender: FDA-Public Use
  Company Number: CL-ACCORD-198269

PATIENT
  Age: 30 Year
  Sex: Female

DRUGS (6)
  1. VALPROIC ACID. [Suspect]
     Active Substance: VALPROIC ACID
     Dosage: APPROXIMATELY 30 G OF VPA (60 PILLS OF 500 MG)
     Route: 048
  2. PARACETAMOL [Suspect]
     Active Substance: ACETAMINOPHEN
     Dosage: UNSPECIFIED AMOUNT
     Route: 048
  3. VALPROIC ACID. [Suspect]
     Active Substance: VALPROIC ACID
     Indication: EPILEPSY
     Dosage: APPROXIMATELY 30 G OF VPA (60 PILLS OF 500 MG)
     Route: 048
  4. ESCITALOPRAM [Concomitant]
     Active Substance: ESCITALOPRAM OXALATE
     Indication: DEPRESSION
  5. ESCITALOPRAM [Concomitant]
     Active Substance: ESCITALOPRAM OXALATE
     Indication: EPILEPSY
  6. CLONAZEPAM. [Suspect]
     Active Substance: CLONAZEPAM
     Dosage: 120 MG OF CLONAZEPAM (60 PILLS OF 2 MG)
     Route: 048

REACTIONS (7)
  - Drug level increased [Recovered/Resolved]
  - Mental status changes [Recovered/Resolved]
  - Toxicity to various agents [Unknown]
  - Hyperammonaemia [Recovered/Resolved]
  - Intentional overdose [Unknown]
  - Hypernatraemia [Recovered/Resolved]
  - Hypotension [Recovered/Resolved]
